FAERS Safety Report 6658071 (Version 23)
Quarter: 2013Q3

REPORT INFORMATION
  Report Type: Spontaneous
  Country: US (occurrence: US)
  Receive Date: 20080605
  Receipt Date: 20130923
  Transmission Date: 20140515
  Serious: Yes (Hospitalization, Other)
  Sender: FDA-Public Use
  Company Number: PHEH2008US04922

PATIENT
  Age: 53 Year
  Sex: Female

DRUGS (25)
  1. ZOMETA [Suspect]
     Route: 042
     Dates: start: 20021018, end: 20050322
  2. RADIATION THERAPY [Concomitant]
     Dates: start: 2002
  3. ARIMIDEX ^ASTRAZENECA^ [Concomitant]
     Dates: start: 2002, end: 200502
  4. CYTOXAN [Concomitant]
     Route: 042
  5. METHOTREXATE [Concomitant]
  6. 5-FU [Concomitant]
  7. XELODA [Concomitant]
  8. LORAZEPAM [Concomitant]
  9. DARVOCET-N [Concomitant]
  10. CELEXA [Concomitant]
  11. CITALOPRAM [Concomitant]
  12. BENAZEPRIL [Concomitant]
  13. HYDROCODONE [Concomitant]
  14. NORTRIPTYLINE [Concomitant]
  15. LEVOXYL [Concomitant]
  16. MONOPRIL [Concomitant]
  17. ALPRAZOLAM [Concomitant]
  18. AMPICILLIN [Concomitant]
  19. PLENDIL [Concomitant]
  20. LOTREL [Concomitant]
  21. LOTENSIN [Concomitant]
  22. XANAX [Concomitant]
  23. ZOFRAN [Concomitant]
  24. COUMADIN ^BOOTS^ [Concomitant]
  25. BENICAR [Concomitant]

REACTIONS (58)
  - Osteonecrosis of jaw [Unknown]
  - Pain in jaw [Unknown]
  - Breath odour [Unknown]
  - General physical health deterioration [Unknown]
  - Pain [Unknown]
  - Anxiety [Unknown]
  - Anhedonia [Unknown]
  - Loose tooth [Unknown]
  - Tooth loss [Unknown]
  - Mucosal inflammation [Unknown]
  - Smear cervix abnormal [Unknown]
  - Stress [Unknown]
  - Metastases to spine [Unknown]
  - Tibia fracture [Unknown]
  - Skeletal injury [Unknown]
  - Fall [Unknown]
  - Osteoarthritis [Unknown]
  - Hot flush [Unknown]
  - Weight increased [Unknown]
  - Nausea [Unknown]
  - Vomiting [Unknown]
  - Headache [Unknown]
  - Grip strength decreased [Unknown]
  - Intervertebral disc degeneration [Unknown]
  - Post-traumatic pain [Unknown]
  - Vertebral osteophyte [Unknown]
  - Back pain [Unknown]
  - Gastritis [Unknown]
  - Duodenitis [Unknown]
  - Basal cell carcinoma [Unknown]
  - Oral infection [Recovering/Resolving]
  - Depression [Unknown]
  - Intervertebral disc protrusion [Unknown]
  - Uterine haemorrhage [Unknown]
  - Bone lesion [Unknown]
  - Gastrooesophageal reflux disease [Unknown]
  - Bursitis [Unknown]
  - Movement disorder [Unknown]
  - Musculoskeletal pain [Unknown]
  - Mouth ulceration [Unknown]
  - Fatigue [Unknown]
  - Arthralgia [Unknown]
  - Sinusitis [Unknown]
  - Sinus disorder [Unknown]
  - Contusion [Recovering/Resolving]
  - Arthropathy [Unknown]
  - Abdominal pain [Unknown]
  - Haemorrhoids [Unknown]
  - Intestinal polyp [Unknown]
  - Dehydration [Unknown]
  - Insomnia [Unknown]
  - Anticoagulation drug level below therapeutic [Unknown]
  - Atelectasis [Unknown]
  - Pulmonary mass [Unknown]
  - Infection [Unknown]
  - Venous insufficiency [Unknown]
  - Oral disorder [Unknown]
  - Exposed bone in jaw [Unknown]
